FAERS Safety Report 7537468-8 (Version None)
Quarter: 2011Q2

REPORT INFORMATION
  Report Type: 
  Country: None (occurrence: None)
  Receive Date: 20110609
  Receipt Date: 20110527
  Transmission Date: 20111010
  Serious: Yes (Other)
  Sender: FDA-Public Use
  Company Number: PHEH2008US08722

PATIENT
  Sex: Female

DRUGS (3)
  1. ZOMETA [Suspect]
  2. TAXOL [Concomitant]
  3. AREDIA [Suspect]

REACTIONS (17)
  - ABSCESS NECK [None]
  - SKIN EXFOLIATION [None]
  - CERVICAL SPINAL STENOSIS [None]
  - METASTASES TO LIVER [None]
  - SPINAL OSTEOARTHRITIS [None]
  - PAIN [None]
  - ANHEDONIA [None]
  - SYNOVIAL CYST [None]
  - OSTEONECROSIS OF JAW [None]
  - DEFORMITY [None]
  - BREAST CANCER METASTATIC [None]
  - DISABILITY [None]
  - WOUND INFECTION [None]
  - RENAL FAILURE CHRONIC [None]
  - ANXIETY [None]
  - HYDRONEPHROSIS [None]
  - HEPATIC MASS [None]
